FAERS Safety Report 5976026-3 (Version None)
Quarter: 2008Q4

REPORT INFORMATION
  Report Type: 
  Country: None (occurrence: None)
  Receive Date: 20081202
  Receipt Date: 20081120
  Transmission Date: 20090506
  Serious: Yes (Other)
  Sender: FDA-Public Use
  Company Number: ES-ROCHE-598912

PATIENT
  Age: 59 Year
  Sex: Female

DRUGS (1)
  1. BONIVA [Suspect]
     Indication: OSTEOPOROSIS
     Dosage: FORMULATION REPORTED AS FILM-COATED TABLETS.
     Route: 048
     Dates: start: 20080502

REACTIONS (3)
  - ARTHRALGIA [None]
  - ATAXIA [None]
  - MUSCLE RIGIDITY [None]
